FAERS Safety Report 5843664-8 (Version None)
Quarter: 2008Q3

REPORT INFORMATION
  Report Type: 
  Country: None (occurrence: None)
  Receive Date: 20080812
  Receipt Date: 20080812
  Transmission Date: 20090109
  Serious: Yes (Hospitalization)
  Sender: FDA-Public Use
  Company Number: None

PATIENT
  Sex: Female
  Weight: 59.9 kg

DRUGS (1)
  1. TEMOZOLOMIDE [Suspect]
     Dosage: 6480 MG

REACTIONS (2)
  - APHASIA [None]
  - CONVULSION [None]
